FAERS Safety Report 12447392 (Version 1)
Quarter: 2016Q2

REPORT INFORMATION
  Report Type: Spontaneous
  Country: SE (occurrence: SE)
  Receive Date: 20160608
  Receipt Date: 20160608
  Transmission Date: 20160815
  Serious: Yes (Other)
  Sender: FDA-Public Use
  Company Number: SE-PFIZER INC-2016282704

PATIENT
  Age: 59 Year
  Sex: Male

DRUGS (5)
  1. SIMPONI [Suspect]
     Active Substance: GOLIMUMAB
     Indication: RHEUMATOID ARTHRITIS
     Dosage: UNK, MONTHLY
     Route: 058
     Dates: start: 201208, end: 201505
  2. SIMPONI [Suspect]
     Active Substance: GOLIMUMAB
     Dosage: UNK, MONTHLY
     Route: 058
     Dates: start: 201508, end: 201601
  3. PREDNISOLONE. [Concomitant]
     Active Substance: PREDNISOLONE
     Dosage: UNK
  4. SIMPONI [Suspect]
     Active Substance: GOLIMUMAB
     Dosage: UNK, MONTHLY
     Route: 058
     Dates: start: 201605
  5. SALAZOPYRIN [Suspect]
     Active Substance: SULFASALAZINE
     Indication: RHEUMATOID ARTHRITIS
     Dosage: 2 G, DAILY
     Route: 048
     Dates: start: 201505, end: 201601

REACTIONS (4)
  - Drug ineffective [Unknown]
  - Urinary retention [Not Recovered/Not Resolved]
  - Hydronephrosis [Not Recovered/Not Resolved]
  - Urine output increased [Unknown]

NARRATIVE: CASE EVENT DATE: 2015
